FAERS Safety Report 21748857 (Version 1)
Quarter: 2022Q4

REPORT INFORMATION
  Report Type: Spontaneous
  Country: US (occurrence: US)
  Receive Date: 20221219
  Receipt Date: 20221219
  Transmission Date: 20230113
  Serious: No
  Sender: FDA-Public Use
  Company Number: US-BAYER-2022A171302

PATIENT
  Age: 7 Year
  Sex: Female

DRUGS (1)
  1. MIRALAX [Suspect]
     Active Substance: POLYETHYLENE GLYCOL 3350
     Indication: Gastrointestinal disorder
     Dosage: DOCTOR TOLD US TO GIVE HER HALF A DOSE OF MIRALAX THREE TIMES A DAY, BUT WE PLAN ON GIVEN HER HALF A
     Route: 048
     Dates: start: 20221214

REACTIONS (1)
  - Incorrect dose administered [Unknown]

NARRATIVE: CASE EVENT DATE: 20221214
